FAERS Safety Report 5768204-3 (Version None)
Quarter: 2008Q2

REPORT INFORMATION
  Report Type: 
  Country: None (occurrence: None)
  Receive Date: 20080612
  Receipt Date: 20080602
  Transmission Date: 20081010
  Serious: Yes (Hospitalization)
  Sender: FDA-Public Use
  Company Number: JP-MERCK-0803USA03132

PATIENT
  Age: 67 Year
  Sex: Male
  Weight: 56 kg

DRUGS (10)
  1. ZOCOR [Suspect]
     Indication: HYPERLIPIDAEMIA
     Route: 048
     Dates: end: 20080303
  2. LOXONIN [Suspect]
     Route: 048
     Dates: end: 20080303
  3. DEPAS [Suspect]
     Route: 048
     Dates: end: 20080303
  4. FAMOTIDINE [Suspect]
     Indication: GASTRIC ULCER
     Route: 048
     Dates: start: 20071217, end: 20080303
  5. RABEPRAZOLE SODIUM [Suspect]
     Indication: GASTRIC ULCER
     Route: 048
     Dates: start: 20080104, end: 20080303
  6. GASMOTIN [Suspect]
     Indication: GASTRIC ULCER
     Route: 048
     Dates: start: 20071220, end: 20080303
  7. RHYTHMY [Concomitant]
     Indication: INSOMNIA
     Route: 048
     Dates: end: 20080303
  8. DIAZEPAM [Concomitant]
     Indication: INSOMNIA
     Route: 048
     Dates: end: 20080303
  9. PLAUNOTOL [Concomitant]
     Route: 048
     Dates: end: 20080303
  10. MYONAL [Concomitant]
     Route: 048
     Dates: end: 20080303

REACTIONS (6)
  - BACK INJURY [None]
  - DYSTHYMIC DISORDER [None]
  - GASTRIC ULCER [None]
  - INSOMNIA [None]
  - INTERSTITIAL LUNG DISEASE [None]
  - MUSCLE STRAIN [None]
